FAERS Safety Report 4432643-3 (Version None)
Quarter: 2004Q3

REPORT INFORMATION
  Report Type: 
  Country: None (occurrence: None)
  Receive Date: 20040820
  Receipt Date: 20040810
  Transmission Date: 20050211
  Serious: Yes (Hospitalization, Other)
  Sender: FDA-Public Use
  Company Number: 2004000911

PATIENT
  Age: 47 Year
  Sex: Male
  Weight: 86.1834 kg

DRUGS (4)
  1. ZITHROMAX [Suspect]
     Indication: UPPER RESPIRATORY TRACT INFECTION
     Dosage: ORAL
     Route: 048
     Dates: start: 20031220, end: 20031222
  2. VANCOMYCIN [Suspect]
     Indication: PATHOGEN RESISTANCE
     Dosage: 1 GRAM, INTRAVENOUS
     Route: 042
     Dates: start: 20031224, end: 20040123
  3. OTHER COLD COMBINATION PREPARATIONS (OTHER COLD COMBINATION PREPARATIO [Concomitant]
  4. IBUPROFEN [Concomitant]

REACTIONS (86)
  - ABDOMINAL DISCOMFORT [None]
  - ABDOMINAL DISTENSION [None]
  - ABDOMINAL PAIN [None]
  - ACTIVATED PARTIAL THROMBOPLASTIN TIME SHORTENED [None]
  - ALBUMIN GLOBULIN RATIO INCREASED [None]
  - ANOREXIA [None]
  - ARTHRALGIA [None]
  - ASTHENIA [None]
  - ATELECTASIS [None]
  - BACTERIAL INFECTION [None]
  - BEDRIDDEN [None]
  - BLOOD CALCIUM DECREASED [None]
  - BLOOD CHLORIDE DECREASED [None]
  - BLOOD CREATINE PHOSPHOKINASE INCREASED [None]
  - BLOOD FIBRINOGEN INCREASED [None]
  - BLOOD IMMUNOGLOBULIN M INCREASED [None]
  - BLOOD PHOSPHORUS DECREASED [None]
  - BLOOD POTASSIUM INCREASED [None]
  - BOWEL SOUNDS ABNORMAL [None]
  - BUNDLE BRANCH BLOCK RIGHT [None]
  - CHROMATURIA [None]
  - COMPLEMENT FACTOR C3 DECREASED [None]
  - COMPLEMENT FACTOR C4 DECREASED [None]
  - COOMBS DIRECT TEST POSITIVE [None]
  - DIALYSIS [None]
  - DIARRHOEA [None]
  - DIZZINESS [None]
  - DRUG HYPERSENSITIVITY [None]
  - EPISTAXIS [None]
  - EPSTEIN-BARR VIRUS INFECTION [None]
  - ESSENTIAL HYPERTENSION [None]
  - FIBRIN D DIMER INCREASED [None]
  - FLANK PAIN [None]
  - GASTROOESOPHAGEAL REFLUX DISEASE [None]
  - HAEMATURIA [None]
  - HAEMODIALYSIS [None]
  - HAEMOLYTIC ANAEMIA [None]
  - HAPTOGLOBIN DECREASED [None]
  - HEPATIC FAILURE [None]
  - HEPATOCELLULAR DAMAGE [None]
  - HEPATOSPLENOMEGALY [None]
  - HERPES SIMPLEX [None]
  - HYPERHIDROSIS [None]
  - INFECTION [None]
  - INFLUENZA [None]
  - INFUSION SITE REACTION [None]
  - INSOMNIA [None]
  - INTRAVASCULAR HAEMOLYSIS [None]
  - JAUNDICE [None]
  - JOINT SWELLING [None]
  - LABORATORY TEST ABNORMAL [None]
  - LEGIONELLA SEROLOGY POSITIVE [None]
  - LYMPHOCYTE PERCENTAGE DECREASED [None]
  - MYCOPLASMA SEROLOGY POSITIVE [None]
  - MYOGLOBINAEMIA [None]
  - MYOGLOBINURIA [None]
  - NAUSEA [None]
  - NEUTROPHIL TOXIC GRANULATION PRESENT [None]
  - OCULAR ICTERUS [None]
  - OEDEMA [None]
  - OEDEMA PERIPHERAL [None]
  - OLIGURIA [None]
  - PARVOVIRUS INFECTION [None]
  - PCO2 DECREASED [None]
  - POST PROCEDURAL COMPLICATION [None]
  - PROTEIN TOTAL DECREASED [None]
  - PROTEINURIA [None]
  - PRURITUS [None]
  - RED BLOOD CELL BURR CELLS PRESENT [None]
  - RED BLOOD CELL COUNT DECREASED [None]
  - RED CELL DISTRIBUTION WIDTH INCREASED [None]
  - RENAL FAILURE ACUTE [None]
  - RENAL TUBULAR NECROSIS [None]
  - RESPIRATORY RATE INCREASED [None]
  - RETCHING [None]
  - RETICULOCYTE PERCENTAGE INCREASED [None]
  - SURGICAL PROCEDURE REPEATED [None]
  - TACHYCARDIA [None]
  - THROMBOCYTOPENIA [None]
  - TRANSFUSION REACTION [None]
  - TREMOR [None]
  - URTICARIA [None]
  - VIRAL INFECTION [None]
  - VOMITING [None]
  - WHITE BLOOD CELL COUNT INCREASED [None]
  - WHITE BLOOD CELL MORPHOLOGY ABNORMAL [None]
